FAERS Safety Report 17510830 (Version 8)
Quarter: 2021Q3

REPORT INFORMATION
  Report Type: Report from Study
  Country: GB (occurrence: GB)
  Receive Date: 20200306
  Receipt Date: 20210728
  Transmission Date: 20211014
  Serious: Yes (Hospitalization, Other)
  Sender: FDA-Public Use
  Company Number: GB-MYLANLABS-2020M1023063

PATIENT
  Age: 54 Year
  Sex: Female

DRUGS (155)
  1. CLAVULANATE POTASSIUM [Concomitant]
     Active Substance: CLAVULANATE POTASSIUM
     Indication: CELLULITIS
     Dosage: 625 MILLIGRAM, TID
     Route: 048
     Dates: start: 20190205, end: 20190206
  2. DOXYCLINE                          /00055701/ [Concomitant]
     Active Substance: DOXYCYCLINE
     Dosage: 100 MILLIGRAM
     Route: 048
     Dates: start: 20200728, end: 20200728
  3. ZANAMIVIR [Concomitant]
     Active Substance: ZANAMIVIR
     Indication: PYREXIA
     Dosage: 10 MILLIGRAM, BID
     Route: 055
     Dates: start: 20191218, end: 20191219
  4. FUROSEMIDE. [Concomitant]
     Active Substance: FUROSEMIDE
     Dosage: 40 MILLIGRAM, BID
     Route: 048
     Dates: start: 20200626
  5. AMOXICILLIN. [Concomitant]
     Active Substance: AMOXICILLIN
     Indication: PYREXIA
     Dosage: UNK, QD
     Route: 048
     Dates: start: 20160317, end: 20160317
  6. AMOXICILLIN. [Concomitant]
     Active Substance: AMOXICILLIN
     Dosage: 550 MILLIGRAM, TID
     Route: 048
     Dates: start: 20180701, end: 20180711
  7. AMOXICILLIN. [Concomitant]
     Active Substance: AMOXICILLIN
     Dosage: 500 MILLIGRAM
     Route: 048
     Dates: start: 20180701, end: 20180711
  8. AMOXICILLIN. [Concomitant]
     Active Substance: AMOXICILLIN
     Dosage: 500 MILLIGRAM, QD
     Route: 048
     Dates: start: 20201026, end: 20201027
  9. ACYCLOVIR                          /00587301/ [Concomitant]
     Active Substance: ACYCLOVIR
     Indication: HERPES ZOSTER
     Dosage: 800 MILLIGRAM
     Route: 048
     Dates: start: 20160727, end: 20160807
  10. MAGNESIUM ASPARTATE [Concomitant]
     Active Substance: MAGNESIUM ASPARTATE
     Indication: HYPOMAGNESAEMIA
     Dosage: 13 MILLIGRAM, QD 6.5 MG BID
     Route: 048
     Dates: start: 20191111
  11. COTRIMOXAZOLE [Concomitant]
     Active Substance: SULFAMETHOXAZOLE\TRIMETHOPRIM
     Indication: SEPSIS
     Dosage: 960 MILLIGRAM, BID
     Route: 048
     Dates: start: 20190206, end: 20190211
  12. BENZYLPENICILLIN [Concomitant]
     Active Substance: PENICILLIN G
     Indication: CELLULITIS
     Dosage: 1.2 GRAM, Q6H
     Route: 042
     Dates: start: 20180912, end: 20180915
  13. MEROPENEM. [Concomitant]
     Active Substance: MEROPENEM
     Indication: PYREXIA
     Dosage: 1 GRAM, 3XW
     Route: 042
     Dates: start: 20181222, end: 20181227
  14. MEROPENEM. [Concomitant]
     Active Substance: MEROPENEM
     Dosage: 1 GRAM
     Route: 042
     Dates: start: 20200728, end: 20200728
  15. TEICOPLANIN [Concomitant]
     Active Substance: TEICOPLANIN
     Indication: PYREXIA
     Dosage: 600 MILLIGRAM, BID
     Route: 042
     Dates: start: 20181019, end: 20181025
  16. BLOOD [Concomitant]
     Active Substance: WHOLE BLOOD
     Dosage: 3 UNIT
     Route: 042
     Dates: start: 20200613, end: 20200613
  17. LEVOTHYROXINE. [Concomitant]
     Active Substance: LEVOTHYROXINE
     Indication: HYPOTHYROIDISM
     Dosage: 50 MICROGRAM, QD
     Route: 048
     Dates: start: 20200311
  18. FERROUS SULFATE. [Concomitant]
     Active Substance: FERROUS SULFATE
     Indication: ANAEMIA
     Dosage: 200 MILLIGRAM, QD
     Route: 048
     Dates: start: 20200804
  19. LETROZOLE. [Concomitant]
     Active Substance: LETROZOLE
     Dosage: 2.5 MILLIGRAM, QD
     Route: 048
     Dates: start: 201507, end: 20170427
  20. CLARITHROMYCIN. [Concomitant]
     Active Substance: CLARITHROMYCIN
     Indication: LOWER RESPIRATORY TRACT INFECTION
     Dosage: 1000 MILLIGRAM, QD
     Route: 048
     Dates: start: 20180701, end: 20180711
  21. DOXYCLINE                          /00055701/ [Concomitant]
     Active Substance: DOXYCYCLINE
     Dosage: 200 MILLIGRAM, QD
     Route: 048
     Dates: start: 20190929, end: 20191005
  22. CITALOPRAM [Concomitant]
     Active Substance: CITALOPRAM HYDROBROMIDE
     Dosage: 40 MILLIGRAM, QD
     Route: 048
     Dates: start: 2005
  23. DEXAMETHASONE. [Concomitant]
     Active Substance: DEXAMETHASONE
     Dosage: 8 MILLIGRAM, QD
     Route: 048
     Dates: start: 20151104, end: 20151110
  24. DEXAMETHASONE. [Concomitant]
     Active Substance: DEXAMETHASONE
     Dosage: 2 MILLIGRAM, QD, 1 MG 0.5 DAY
     Route: 048
     Dates: start: 20151118, end: 20151124
  25. DEXAMETHASONE. [Concomitant]
     Active Substance: DEXAMETHASONE
     Dosage: 4 MILLIGRAM, BID
     Route: 048
     Dates: start: 20151104, end: 20151110
  26. GABAPENTIN. [Concomitant]
     Active Substance: GABAPENTIN
     Dosage: 1.2 GRAM, TID
     Route: 048
  27. LOPERAMIDE [Concomitant]
     Active Substance: LOPERAMIDE
     Indication: DIARRHOEA
     Dosage: UNK
     Route: 065
     Dates: start: 201804, end: 2019
  28. AMOXICILLIN. [Concomitant]
     Active Substance: AMOXICILLIN
     Dosage: 1650 MILLIGRAM, QD
     Route: 048
     Dates: start: 20180701, end: 20180711
  29. AMOXICILLIN. [Concomitant]
     Active Substance: AMOXICILLIN
     Indication: PYREXIA
     Dosage: 3 GRAM, QD
     Route: 042
     Dates: start: 20191111, end: 20191115
  30. CYCLIZINE [Concomitant]
     Active Substance: CYCLIZINE
     Indication: PRODUCT USED FOR UNKNOWN INDICATION
     Dosage: 150 MILLIGRAM, QD, 50MG 0.33 DAY
     Route: 048
     Dates: start: 201507
  31. DIAZEPAM. [Concomitant]
     Active Substance: DIAZEPAM
     Indication: BACK PAIN
  32. ZOMORPH [Concomitant]
     Active Substance: MORPHINE SULFATE
     Indication: PAIN
     Dosage: 30 MILLIGRAM, BID
     Route: 048
     Dates: start: 201611
  33. ACYCLOVIR                          /00587301/ [Concomitant]
     Active Substance: ACYCLOVIR
     Indication: HERPES ZOSTER
     Dosage: UNK (OTHER)
     Route: 061
     Dates: start: 20161213, end: 20161218
  34. FLUCLOXACILLIN [Concomitant]
     Active Substance: FLUCLOXACILLIN
     Dosage: 1 GRAM, Q6H
     Route: 042
     Dates: start: 20180912, end: 20180915
  35. RIFAMPICIN [Concomitant]
     Active Substance: RIFAMPIN
     Dosage: 300 MILLIGRAM, BID
     Route: 048
     Dates: start: 20200212, end: 20200212
  36. METRONIDAZOLE. [Concomitant]
     Active Substance: METRONIDAZOLE
     Dosage: 400 MILLIGRAM, Q6H
     Route: 048
     Dates: start: 20180915, end: 20180921
  37. INHIXA [Concomitant]
     Active Substance: ENOXAPARIN SODIUM
     Dosage: 40 MILLIGRAM, QD
     Route: 058
     Dates: start: 20200622
  38. BLOOD [Concomitant]
     Active Substance: WHOLE BLOOD
     Dosage: UNK
     Route: 042
     Dates: start: 20161022, end: 20161022
  39. BLOOD [Concomitant]
     Active Substance: WHOLE BLOOD
     Dosage: UNK
     Route: 042
     Dates: start: 20181022, end: 20181022
  40. CLARITHROMYCIN. [Concomitant]
     Active Substance: CLARITHROMYCIN
     Dosage: 500 MILLIGRAM, BID
     Route: 048
     Dates: start: 20200728, end: 20200803
  41. MORPHINE SULFATE. [Concomitant]
     Active Substance: MORPHINE SULFATE
     Dosage: 60 MILLIGRAM, QD
     Route: 048
     Dates: start: 201504, end: 20160516
  42. DOXYCLINE                          /00055701/ [Concomitant]
     Active Substance: DOXYCYCLINE
     Dosage: 200 MILLIGRAM, QD
     Route: 048
     Dates: start: 20191223, end: 20191230
  43. DEXAMETHASONE. [Concomitant]
     Active Substance: DEXAMETHASONE
     Dosage: 1 MILLIGRAM, BID
     Route: 048
     Dates: start: 20151118, end: 20151124
  44. GABAPENTIN. [Concomitant]
     Active Substance: GABAPENTIN
     Dosage: 300 MILLIGRAM, Q3D
     Route: 048
     Dates: start: 20151231
  45. CO?AMOXICLAV                       /01000301/ [Concomitant]
     Active Substance: AMOXICILLIN\CLAVULANATE POTASSIUM
     Indication: PYREXIA
     Dosage: 625 MILLIGRAM, Q8H
     Route: 048
     Dates: start: 20190205, end: 20190206
  46. DERMOL                             /01330701/ [Concomitant]
     Dosage: UNK (0.25 DAY)
     Route: 061
  47. FUROSEMIDE. [Concomitant]
     Active Substance: FUROSEMIDE
     Dosage: 40 MILLIGRAM 0.5 DAY
     Route: 048
     Dates: start: 20200620
  48. FUROSEMIDE. [Concomitant]
     Active Substance: FUROSEMIDE
     Dosage: 40 MILLIGRAM, QD
     Route: 048
     Dates: start: 20200623, end: 20200626
  49. AMOXICILLIN. [Concomitant]
     Active Substance: AMOXICILLIN
     Dosage: 1 GRAM, TID
     Route: 048
     Dates: start: 20200626, end: 20200628
  50. AMOXICILLIN. [Concomitant]
     Active Substance: AMOXICILLIN
     Dosage: 1 GRAM, TID
     Route: 042
     Dates: start: 20191115, end: 20191118
  51. CYCLIZINE [Concomitant]
     Active Substance: CYCLIZINE
     Indication: PRODUCT USED FOR UNKNOWN INDICATION
     Dosage: 50 MILLIGRAM
     Route: 048
     Dates: start: 201507
  52. ZOMORPH [Concomitant]
     Active Substance: MORPHINE SULFATE
     Indication: PAIN
     Dosage: 30 MILLIGRAM
     Dates: start: 201611
  53. LINEZOLID. [Concomitant]
     Active Substance: LINEZOLID
     Indication: PYREXIA
     Dosage: 600 MILLIGRAM, BID
     Route: 048
     Dates: start: 20181223, end: 20181227
  54. COTRIMOXAZOLE [Concomitant]
     Active Substance: SULFAMETHOXAZOLE\TRIMETHOPRIM
     Dosage: 960 MILLIGRAM, BID
     Route: 048
     Dates: start: 20200728, end: 20200803
  55. ZOMETA [Concomitant]
     Active Substance: ZOLEDRONIC ACID
     Dosage: 4 MILLIGRAM
     Route: 042
     Dates: start: 20150827, end: 20160314
  56. VANCOMYCIN [Concomitant]
     Active Substance: VANCOMYCIN
     Dosage: 1.5 MILLIGRAM, BID
     Route: 042
     Dates: start: 20200201, end: 20200206
  57. METRONIDAZOLE. [Concomitant]
     Active Substance: METRONIDAZOLE
     Indication: OSTEOMYELITIS
     Dosage: UNK
     Route: 048
     Dates: start: 20170701, end: 20170708
  58. AMOXICILLIN CLAVULANIC ACID [Concomitant]
     Active Substance: AMOXICILLIN\CLAVULANIC ACID
     Indication: PYREXIA
     Dosage: 3750 MILLIGRAM
     Route: 048
     Dates: start: 20190322
  59. PREDNISOLONE                       /00016202/ [Concomitant]
     Active Substance: PREDNISOLONE
     Dosage: 30 MILLIGRAM, QD
     Route: 048
     Dates: start: 20200625, end: 20200629
  60. EXEMESTANE. [Suspect]
     Active Substance: EXEMESTANE
     Indication: HER2 POSITIVE BREAST CANCER
     Dosage: 25 MILLIGRAM, QD (LAST DOSE ON 10 JAN 2018)
     Route: 048
     Dates: start: 20170428, end: 20180110
  61. TRASTUZUMAB EMTANSINE [Suspect]
     Active Substance: ADO-TRASTUZUMAB EMTANSINE
     Indication: BREAST CANCER METASTATIC
  62. DENOSUMAB [Concomitant]
     Active Substance: DENOSUMAB
     Indication: METASTASES TO BONE
     Dosage: 120 MILLIGRAM
     Route: 058
     Dates: start: 20170604, end: 20170613
  63. PROMETHAZINE HYDROCHLORIDE. [Concomitant]
     Active Substance: PROMETHAZINE HYDROCHLORIDE
     Dosage: 25 MILLIGRAM, QD
     Route: 048
  64. DEXAMETHASONE. [Concomitant]
     Active Substance: DEXAMETHASONE
     Dosage: 4 MILLIGRAM, QD (2 MG, 0.5 DAY)
     Route: 048
     Dates: start: 20151111, end: 20151117
  65. DEXAMETHASONE. [Concomitant]
     Active Substance: DEXAMETHASONE
     Dosage: 8 MILLIGRAM, QD
     Route: 048
     Dates: start: 20151020, end: 20151103
  66. DERMOL                             /01330701/ [Concomitant]
     Dosage: 4 DOSAGE FORM, QD
     Route: 061
  67. FUROSEMIDE. [Concomitant]
     Active Substance: FUROSEMIDE
     Indication: OEDEMA PERIPHERAL
     Dosage: 80 MILLIGRAM, QD
     Route: 048
     Dates: start: 20151112, end: 20151118
  68. FUROSEMIDE. [Concomitant]
     Active Substance: FUROSEMIDE
     Dosage: 40 MILLIGRAM, QD
     Route: 048
     Dates: start: 20200622, end: 20200623
  69. FUROSEMIDE. [Concomitant]
     Active Substance: FUROSEMIDE
     Dosage: 40 MILLIGRAM, BID
     Route: 042
     Dates: start: 20200623, end: 20200626
  70. AMOXICILLIN. [Concomitant]
     Active Substance: AMOXICILLIN
     Dosage: 1 GRAM, 3 TIMES A DAY
     Route: 048
     Dates: start: 20191218, end: 20191221
  71. AMOXICILLIN. [Concomitant]
     Active Substance: AMOXICILLIN
     Indication: OSTEOMYELITIS
     Dosage: 1 GRAM, TID
     Route: 042
     Dates: start: 20200622, end: 20200626
  72. AMOXICILLIN. [Concomitant]
     Active Substance: AMOXICILLIN
     Dosage: 1 GRAM, TID
     Route: 042
     Dates: start: 20191218, end: 20191218
  73. ACYCLOVIR                          /00587301/ [Concomitant]
     Active Substance: ACYCLOVIR
     Indication: ORAL HERPES
     Dosage: UNK (OTHER)
     Route: 061
     Dates: start: 20160727, end: 20161218
  74. LINEZOLID. [Concomitant]
     Active Substance: LINEZOLID
     Dosage: 600 MILLIGRAM, BID
     Route: 042
     Dates: start: 20190611, end: 20190621
  75. LINEZOLID. [Concomitant]
     Active Substance: LINEZOLID
     Dosage: 600 MILLIGRAM, BID
     Route: 042
     Dates: start: 20200206, end: 20200212
  76. CLINDAMYCIN. [Concomitant]
     Active Substance: CLINDAMYCIN
     Dosage: 300 MILLIGRAM, BID
     Route: 048
     Dates: start: 20200206, end: 20200212
  77. FLUCLOXACILLIN [Concomitant]
     Active Substance: FLUCLOXACILLIN
     Indication: CELLULITIS
     Dosage: 500 MILLIGRAM, Q6H
     Route: 048
     Dates: start: 20161110, end: 20161117
  78. FLUCLOXACILLIN [Concomitant]
     Active Substance: FLUCLOXACILLIN
     Indication: PYREXIA
     Dosage: 500 MILLIGRAM, Q6H
     Route: 048
     Dates: start: 20180910, end: 20180912
  79. VITAMIN D3 [Concomitant]
     Active Substance: CHOLECALCIFEROL
     Indication: PRODUCT USED FOR UNKNOWN INDICATION
     Dosage: 400 INTERNATIONAL UNIT, QD
     Route: 048
     Dates: start: 20150827
  80. DOXYCYCLINE. [Concomitant]
     Active Substance: DOXYCYCLINE
     Indication: PYREXIA
     Dosage: 100 MILLIGRAM, QD
     Route: 048
     Dates: start: 20180815
  81. INHIXA [Concomitant]
     Active Substance: ENOXAPARIN SODIUM
     Indication: PROPHYLAXIS
     Dosage: 40 MILLIGRAM, QD
     Route: 058
     Dates: start: 20190610, end: 20190623
  82. BLOOD [Concomitant]
     Active Substance: WHOLE BLOOD
     Dosage: UNK
     Route: 042
     Dates: start: 20160317, end: 20160317
  83. BLOOD [Concomitant]
     Active Substance: WHOLE BLOOD
     Dosage: UNK DOSAGE FORM
     Route: 042
     Dates: start: 20190611, end: 20190611
  84. CIPROFLOXACIN. [Concomitant]
     Active Substance: CIPROFLOXACIN
     Indication: PYREXIA
     Dosage: 750 MILLIGRAM, BID
     Route: 048
     Dates: start: 20190205, end: 20190206
  85. TRASTUZUMAB. [Suspect]
     Active Substance: TRASTUZUMAB
     Dosage: 420 MILLIGRAM, 4XW
     Route: 042
     Dates: start: 20181118
  86. DOXYCLINE                          /00055701/ [Concomitant]
     Active Substance: DOXYCYCLINE
     Dosage: 100 MILLIGRAM, QD
     Route: 048
     Dates: start: 20180814, end: 20180814
  87. DEXAMETHASONE. [Concomitant]
     Active Substance: DEXAMETHASONE
     Dosage: 2 MILLIGRAM, QD (1 MG, 0.5 DAY)
     Route: 048
     Dates: start: 20151125, end: 20151202
  88. GABAPENTIN. [Concomitant]
     Active Substance: GABAPENTIN
     Dosage: 3.6 GRAM, QD
     Route: 048
     Dates: start: 20151231
  89. CO?AMOXICLAV                       /01000301/ [Concomitant]
     Active Substance: AMOXICILLIN\CLAVULANATE POTASSIUM
     Indication: CELLULITIS
     Dosage: UNK
     Route: 048
     Dates: start: 20190322
  90. AMOXICILLIN. [Concomitant]
     Active Substance: AMOXICILLIN
     Indication: LOWER RESPIRATORY TRACT INFECTION
     Dosage: 3 GRAM, QD
     Route: 042
     Dates: start: 20191218, end: 20191219
  91. CLINDAMYCIN. [Concomitant]
     Active Substance: CLINDAMYCIN
     Dosage: 1.2 GRAM, TID
     Route: 042
     Dates: start: 20200206, end: 20200212
  92. HYOSCINE BUTYLBROMIDE [Concomitant]
     Active Substance: BUTYLSCOPOLAMINE BROMIDE
     Dosage: 10 MILLIGRAM, 0.33 DAY, 30 MILLIGRAM, QD
     Route: 048
     Dates: start: 20181222
  93. PARACETAMOL [Concomitant]
     Active Substance: ACETAMINOPHEN
     Indication: PRODUCT USED FOR UNKNOWN INDICATION
     Dosage: 500 MILLIGRAM, PRN
     Route: 048
     Dates: start: 201504
  94. MEROPENEM. [Concomitant]
     Active Substance: MEROPENEM
     Dosage: 1 GRAM, 3XW
     Route: 042
     Dates: start: 20190610, end: 20190617
  95. BLOOD [Concomitant]
     Active Substance: WHOLE BLOOD
     Dosage: UNK
     Route: 042
     Dates: start: 20191112, end: 20191112
  96. TRASTUZUMAB. [Suspect]
     Active Substance: TRASTUZUMAB
     Indication: BREAST CANCER METASTATIC
     Dosage: 420 MILLIGRAM, 4XW
     Route: 042
     Dates: start: 20180118
  97. TRASTUZUMAB EMTANSINE [Suspect]
     Active Substance: ADO-TRASTUZUMAB EMTANSINE
     Indication: HER2 POSITIVE BREAST CANCER
     Dosage: 420 MILLIGRAM, EVERY FOUR WEEK
     Route: 042
     Dates: start: 20180118
  98. CLARITHROMYCIN. [Concomitant]
     Active Substance: CLARITHROMYCIN
     Indication: SEPSIS
     Dosage: 1100 MILLIGRAM, QD
     Route: 048
     Dates: start: 20190415
  99. CLARITHROMYCIN. [Concomitant]
     Active Substance: CLARITHROMYCIN
     Indication: PNEUMONIA
     Dosage: 1000 MILLIGRAM, QD
     Route: 048
     Dates: start: 20191219, end: 20191221
  100. PROMETHAZINE HYDROCHLORIDE. [Concomitant]
     Active Substance: PROMETHAZINE HYDROCHLORIDE
     Indication: PRODUCT USED FOR UNKNOWN INDICATION
     Dosage: 50 MILLIGRAM, QD
     Route: 048
  101. DEXAMETHASONE. [Concomitant]
     Active Substance: DEXAMETHASONE
     Indication: METASTASES TO BONE
     Dosage: 16 MILLIGRAM, QD (8 MG, 0. 5 DAY)
     Route: 048
     Dates: start: 20151008, end: 20151020
  102. LANSOPRAZOLE. [Concomitant]
     Active Substance: LANSOPRAZOLE
     Indication: REFLUX GASTRITIS
     Dosage: 30 MILLIGRAM, QD
     Route: 048
     Dates: start: 2001
  103. FUROSEMIDE. [Concomitant]
     Active Substance: FUROSEMIDE
     Dosage: 20 MILLIGRAM, QD
     Route: 048
     Dates: start: 20191113, end: 20191116
  104. AMOXICILLIN. [Concomitant]
     Active Substance: AMOXICILLIN
     Dosage: 500 MILLIGRAM, 3 TIMES A DAY
     Route: 048
     Dates: start: 20191115, end: 20191118
  105. DIAZEPAM. [Concomitant]
     Active Substance: DIAZEPAM
     Indication: MUSCULOSKELETAL STIFFNESS
     Dosage: 2 MILLIGRAM, TID
     Route: 048
     Dates: start: 20180105
  106. COTRIMOXAZOLE [Concomitant]
     Active Substance: SULFAMETHOXAZOLE\TRIMETHOPRIM
     Indication: PYREXIA
     Dosage: 960 MILLIGRAM, BID
     Route: 042
     Dates: start: 20190611, end: 20190611
  107. FLUCLOXACILLIN [Concomitant]
     Active Substance: FLUCLOXACILLIN
     Indication: PARONYCHIA
     Dosage: 500 MILLIGRAM, Q6H
     Route: 048
     Dates: start: 20180915, end: 20180921
  108. AMITRIPTYLINE                      /00002202/ [Concomitant]
     Active Substance: AMITRIPTYLINE
     Indication: HERPES ZOSTER
     Dosage: 10 MILLIGRAM, QD
     Route: 048
     Dates: start: 20160727, end: 20160809
  109. TAZOCIN [Concomitant]
     Active Substance: PIPERACILLIN SODIUM\TAZOBACTAM SODIUM
     Dosage: 4.5 MILLIGRAM, Q8H
     Route: 042
     Dates: start: 20191221, end: 20191227
  110. MEROPENEM. [Concomitant]
     Active Substance: MEROPENEM
     Dosage: 1 GRAM, 3XW
     Route: 042
     Dates: start: 20190205, end: 20190205
  111. BLOOD [Concomitant]
     Active Substance: WHOLE BLOOD
     Dosage: 2 DOSAGE FORM
     Route: 042
     Dates: start: 20170906, end: 20170906
  112. BLOOD [Concomitant]
     Active Substance: WHOLE BLOOD
     Dosage: 3 UNIT
     Route: 042
     Dates: start: 20200501, end: 20200501
  113. EXEMESTANE. [Concomitant]
     Active Substance: EXEMESTANE
     Dosage: 25 MILLIGRAM, QD
     Route: 048
     Dates: start: 20170428, end: 20180110
  114. TRASTUZUMAB. [Suspect]
     Active Substance: TRASTUZUMAB
     Indication: HER2 POSITIVE BREAST CANCER
     Dosage: 600 MILLIGRAM, MONTHLY (LAST DOSE RECEIVED ON 22/DEC/2017)
     Route: 058
     Dates: start: 20150716, end: 20171222
  115. VORHYALURONIDASE ALFA [Suspect]
     Active Substance: HYALURONIDASE (HUMAN RECOMBINANT)
     Indication: HER2 POSITIVE BREAST CANCER
     Dosage: 600 MILLIGRAM, MONTHLY
     Route: 058
     Dates: start: 20150716
  116. CLARITHROMYCIN. [Concomitant]
     Active Substance: CLARITHROMYCIN
     Indication: PYREXIA
     Dosage: 1000 MILLIGRAM, QD
     Route: 048
     Dates: start: 20190611, end: 20190611
  117. CLARITHROMYCIN. [Concomitant]
     Active Substance: CLARITHROMYCIN
     Dosage: 500 MILLIGRAM, BID
     Route: 048
     Dates: start: 20200622, end: 20200628
  118. DOXYCLINE                          /00055701/ [Concomitant]
     Active Substance: DOXYCYCLINE
     Dosage: 100 MILLIGRAM, QD
     Route: 048
     Dates: start: 20180815
  119. DERMOL                             /01330701/ [Concomitant]
     Dosage: UNK, Q6H
     Route: 061
  120. NAPROXEN. [Concomitant]
     Active Substance: NAPROXEN
     Indication: PRODUCT USED FOR UNKNOWN INDICATION
     Dosage: 500 MILLIGRAM, QD (250 MG, BID)
     Route: 048
  121. FUROSEMIDE. [Concomitant]
     Active Substance: FUROSEMIDE
     Indication: LYMPHOEDEMA
     Dosage: 40 MILLIGRAM, QD
     Route: 048
     Dates: start: 20191117
  122. AMOXICILLIN. [Concomitant]
     Active Substance: AMOXICILLIN
     Indication: LOWER RESPIRATORY TRACT INFECTION
     Dosage: 3000 MILLIGRAM, QD
     Route: 048
     Dates: start: 20180701, end: 20180711
  123. AMOXICILLIN. [Concomitant]
     Active Substance: AMOXICILLIN
     Indication: OSTEOMYELITIS
     Dosage: 1500 MILLIGRAM, QD
     Route: 048
     Dates: start: 20190414
  124. AMOXICILLIN. [Concomitant]
     Active Substance: AMOXICILLIN
     Dosage: UNK
     Route: 048
     Dates: start: 20180701
  125. COTRIMOXAZOLE [Concomitant]
     Active Substance: SULFAMETHOXAZOLE\TRIMETHOPRIM
     Dosage: 1 DOSAGE FORM, BID
     Route: 048
     Dates: start: 20181015, end: 20181022
  126. CLINDAMYCIN. [Concomitant]
     Active Substance: CLINDAMYCIN
     Dosage: 1.2 MILLIGRAM, Q6H
     Route: 042
     Dates: start: 20190611, end: 20190621
  127. TINZAPARIN [Concomitant]
     Active Substance: TINZAPARIN
     Indication: DEEP VEIN THROMBOSIS
     Dosage: 1 DOSAGE FORM, QD
     Route: 058
     Dates: start: 20190928
  128. TAZOCIN [Concomitant]
     Active Substance: PIPERACILLIN SODIUM\TAZOBACTAM SODIUM
     Dosage: 4.5 MILLIGRAM, Q8H
     Route: 042
     Dates: start: 20200202, end: 20200206
  129. MEROPENEM. [Concomitant]
     Active Substance: MEROPENEM
     Dosage: 1 GRAM, 3XW
     Route: 042
     Dates: start: 20180813, end: 20180814
  130. MEROPENEM. [Concomitant]
     Active Substance: MEROPENEM
     Dosage: 1 GRAM
     Route: 042
     Dates: start: 20200622, end: 20200622
  131. TEICOPLANIN [Concomitant]
     Active Substance: TEICOPLANIN
     Dosage: 800 MILLIGRAM, BID
     Route: 042
     Dates: start: 20200728, end: 20200803
  132. INHIXA [Concomitant]
     Active Substance: ENOXAPARIN SODIUM
     Dosage: 40 MILLIGRAM, QD
     Route: 058
     Dates: start: 20200625, end: 20200625
  133. ACIDEX                             /01521901/ [Concomitant]
     Active Substance: CALCIUM CARBONATE\SODIUM ALGINATE\SODIUM BICARBONATE
     Indication: DYSPEPSIA
     Dosage: 50 MILLIGRAM, PRN
     Route: 048
  134. LETROZOLE. [Suspect]
     Active Substance: LETROZOLE
     Indication: HER2 POSITIVE BREAST CANCER
     Dosage: 2.5 MILLIGRAM, QD (LAST DOSE ON 27/APR/2017)
     Route: 048
     Dates: start: 201507
  135. CLARITHROMYCIN. [Concomitant]
     Active Substance: CLARITHROMYCIN
     Dosage: 1000 MILLIGRAM, QD
     Route: 048
     Dates: start: 20191111, end: 20191118
  136. CLARITHROMYCIN. [Concomitant]
     Active Substance: CLARITHROMYCIN
     Dosage: 500 MILLIGRAM, BID
     Route: 048
     Dates: start: 20201024, end: 20201027
  137. DENOSUMAB [Concomitant]
     Active Substance: DENOSUMAB
     Dosage: 120 MILLIGRAM
     Route: 058
     Dates: start: 20180118
  138. MORPHINE SULFATE. [Concomitant]
     Active Substance: MORPHINE SULFATE
     Indication: BACK PAIN
     Dosage: 30 MILLIGRAM, QD
     Route: 048
     Dates: start: 201504
  139. MORPHINE SULFATE. [Concomitant]
     Active Substance: MORPHINE SULFATE
     Dosage: 40 MILLIGRAM, QD
     Route: 048
     Dates: start: 20150516, end: 201611
  140. MORPHINE SULFATE. [Concomitant]
     Active Substance: MORPHINE SULFATE
     Dosage: 10 MILLIGRAM, QD
     Route: 048
     Dates: start: 20171224
  141. DOXYCLINE                          /00055701/ [Concomitant]
     Active Substance: DOXYCYCLINE
     Indication: PYREXIA
     Dosage: 100 MILLIGRAM, QD
     Route: 048
     Dates: start: 20170112, end: 20170118
  142. LISINOPRIL. [Concomitant]
     Active Substance: LISINOPRIL
     Dosage: 7.5 MILLIGRAM, QD (2.5 MG, 0.33 DAYS)
     Route: 048
     Dates: start: 20161110
  143. PEPTAC                             /01521901/ [Concomitant]
     Active Substance: CALCIUM CARBONATE\SODIUM ALGINATE\SODIUM BICARBONATE
     Indication: DYSPEPSIA
     Dosage: 50 MILLILITER
     Route: 048
  144. LANSOPRAZOLE. [Concomitant]
     Active Substance: LANSOPRAZOLE
     Dosage: 15 MILLIGRAM, QD
     Route: 048
     Dates: start: 2001
  145. FUROSEMIDE. [Concomitant]
     Active Substance: FUROSEMIDE
     Dosage: 20 MILLIGRAM, QD
     Route: 048
     Dates: start: 20191113, end: 20191116
  146. FUROSEMIDE. [Concomitant]
     Active Substance: FUROSEMIDE
     Indication: LYMPHOEDEMA
     Dosage: UNK
     Route: 042
  147. FUROSEMIDE. [Concomitant]
     Active Substance: FUROSEMIDE
     Dosage: 40 MILLIGRAM, QD
     Route: 042
     Dates: start: 20200622, end: 20200623
  148. AMOXICILLIN. [Concomitant]
     Active Substance: AMOXICILLIN
     Dosage: 1 GRAM, TID
     Route: 042
     Dates: start: 20201024, end: 20201026
  149. DIAZEPAM. [Concomitant]
     Active Substance: DIAZEPAM
     Indication: MUSCULOSKELETAL STIFFNESS
     Dosage: 6 MILLIGRAM, QD, 2MG, 0.33 MG
     Route: 048
     Dates: start: 20180105
  150. DIAZEPAM. [Concomitant]
     Active Substance: DIAZEPAM
     Indication: BACK PAIN
  151. ACYCLOVIR                          /00587301/ [Concomitant]
     Active Substance: ACYCLOVIR
     Indication: ORAL HERPES
  152. MAGNESIUM ASPARTATE [Concomitant]
     Active Substance: MAGNESIUM ASPARTATE
     Indication: HYPOMAGNESAEMIA
     Dosage: 6.5 MILLIGRAM
     Route: 048
     Dates: start: 20191111
  153. LINEZOLID. [Concomitant]
     Active Substance: LINEZOLID
     Dosage: 1.2 GRAM, BID
     Route: 042
     Dates: start: 20200206, end: 20200212
  154. FLUCLOXACILLIN [Concomitant]
     Active Substance: FLUCLOXACILLIN
     Dosage: 1 GRAM, Q6H
     Route: 042
     Dates: start: 20200130, end: 20200202
  155. INHIXA [Concomitant]
     Active Substance: ENOXAPARIN SODIUM
     Dosage: 40 MILLIGRAM, BID
     Route: 058
     Dates: start: 20200728, end: 20200805

REACTIONS (4)
  - Fracture [Not Recovered/Not Resolved]
  - Pyrexia [Not Recovered/Not Resolved]
  - Deep vein thrombosis [Recovered/Resolved]
  - Pneumonia [Recovered/Resolved]

NARRATIVE: CASE EVENT DATE: 20190922
